FAERS Safety Report 7512184-7 (Version None)
Quarter: 2011Q2

REPORT INFORMATION
  Report Type: 
  Country: None (occurrence: None)
  Receive Date: 20110524
  Receipt Date: 20110524
  Transmission Date: 20111010
  Serious: Yes (Hospitalization, Disabling, Other)
  Sender: FDA-Public Use
  Company Number: None

PATIENT
  Sex: Male

DRUGS (6)
  1. NASAL CPAP [Concomitant]
  2. UAC [Concomitant]
  3. UVC [Concomitant]
  4. TRIAD ALCOHOL SWABS [Suspect]
     Indication: PHLEBOTOMY
     Dosage: MULTIPLE
  5. TRIAD ALCOHOL SWABS [Suspect]
     Indication: THERAPEUTIC PROCEDURE
     Dosage: MULTIPLE
  6. TRIAD ALCOHOL SWABS [Suspect]
     Indication: CATHETER PLACEMENT
     Dosage: MULTIPLE

REACTIONS (11)
  - APNOEA [None]
  - ENCEPHALITIS [None]
  - NEURODEVELOPMENTAL DISORDER [None]
  - MENINGITIS [None]
  - BLOOD GLUCOSE FLUCTUATION [None]
  - TRANSMISSION OF AN INFECTIOUS AGENT VIA A MEDICINAL PRODUCT [None]
  - DEVICE RELATED INFECTION [None]
  - HYDROCEPHALUS [None]
  - BACILLUS INFECTION [None]
  - BRADYCARDIA [None]
  - CEREBRAL HAEMORRHAGE [None]
